FAERS Safety Report 4865795-1 (Version None)
Quarter: 2005Q4

REPORT INFORMATION
  Report Type: 
  Country: None (occurrence: None)
  Receive Date: 20051223
  Receipt Date: 20051213
  Transmission Date: 20060501
  Serious: Yes (Hospitalization, Other)
  Sender: FDA-Public Use
  Company Number: PHBS2005SE18456

PATIENT
  Age: 67 Year
  Sex: Female

DRUGS (9)
  1. ZOMETA [Suspect]
     Indication: MULTIPLE MYELOMA
     Dosage: 4 MG EVERY 4TH WEEK
     Route: 042
     Dates: end: 20050401
  2. ZOLOFT [Concomitant]
     Dosage: 100 MG/D
     Route: 048
  3. CALCICHEW D3 [Concomitant]
     Route: 048
  4. OMEPRAZOLE [Concomitant]
     Dosage: 20 MG/D
     Route: 048
  5. NEORECORMON [Concomitant]
     Route: 065
  6. DELTISON [Concomitant]
     Dosage: UNK, UNK
     Route: 048
     Dates: start: 20040101, end: 20040101
  7. BEHEPAN [Concomitant]
     Route: 048
  8. CYCLOPHOSPHAMIDE [Concomitant]
     Dosage: UNK, UNK
     Route: 065
     Dates: start: 20040101, end: 20040101
  9. DURAGESIC-100 [Concomitant]
     Dosage: 100 MICROG/HOUR
     Route: 062

REACTIONS (7)
  - ABSCESS JAW [None]
  - BONE DISORDER [None]
  - BONE LESION [None]
  - FISTULA [None]
  - INFECTION [None]
  - OSTEONECROSIS [None]
  - OSTEOSCLEROSIS [None]
